FAERS Safety Report 5697808-1 (Version None)
Quarter: 2008Q2

REPORT INFORMATION
  Report Type: 
  Country: None (occurrence: None)
  Receive Date: 20080408
  Receipt Date: 20080404
  Transmission Date: 20081010
  Serious: Yes (Hospitalization)
  Sender: FDA-Public Use
  Company Number: US-BRISTOL-MYERS SQUIBB COMPANY-14129845

PATIENT
  Age: 51 Year
  Sex: Male
  Weight: 77 kg

DRUGS (15)
  1. CETUXIMAB [Suspect]
     Indication: SQUAMOUS CELL CARCINOMA
     Dosage: START DATE OF FIRST COURSE:18FEB08
     Route: 042
     Dates: start: 20080331, end: 20080331
  2. CISPLATIN [Suspect]
     Indication: SQUAMOUS CELL CARCINOMA
     Dosage: START DATE OF FIRST COURSE:18FEB08
     Route: 042
     Dates: start: 20080310, end: 20080310
  3. RADIATION THERAPY [Suspect]
     Indication: SQUAMOUS CELL CARCINOMA
     Dosage: 1 DOSAGEFORM = 70 GY IN 35 FRACTIONS WITH 4 ELAPSED DAYS. LAST DATE OF TREATMENT: 29-MAR-08
     Dates: start: 20080317, end: 20080317
  4. AMLODIPINE [Concomitant]
     Route: 048
  5. ASPIRIN [Concomitant]
     Route: 048
  6. DOXYCYCLINE [Concomitant]
     Route: 048
  7. FENTANYL [Concomitant]
     Route: 062
  8. HYDROCODONE BITARTRATE [Concomitant]
     Dosage: 2 DOSAGEFORM = 2 TSP
     Route: 048
  9. INSULIN SLIDING SCALE [Concomitant]
     Dosage: SQ AS INSTRUCTED
     Route: 058
  10. LIPITOR [Concomitant]
     Route: 048
  11. LORAZEPAM [Concomitant]
     Route: 048
  12. MAGNESIUM OXIDE [Concomitant]
     Route: 048
  13. METFORMIN HCL [Concomitant]
     Route: 048
  14. OMEGA-3 [Concomitant]
     Dosage: 1 DOSAGEFORM = 1 CAP
     Route: 048
  15. PREVACID [Concomitant]
     Dosage: 1 DOSAGEFORM = 1 TAB
     Route: 048

REACTIONS (5)
  - MUCOSAL INFLAMMATION [None]
  - NAUSEA [None]
  - ORAL PAIN [None]
  - PYREXIA [None]
  - STOMATITIS [None]
